FAERS Safety Report 8317835-5 (Version None)
Quarter: 2012Q2

REPORT INFORMATION
  Report Type: 
  Country: None (occurrence: None)
  Receive Date: 20120427
  Receipt Date: 20120426
  Transmission Date: 20120825
  Serious: Yes (Life-Threatening)
  Sender: FDA-Public Use
  Company Number: JP-B.I. PHARMACEUTICALS,INC./RIDGEFIELD-2012-BP-09599NB

PATIENT
  Age: 80 Year
  Sex: Female

DRUGS (3)
  1. SPIRIVA [Suspect]
     Indication: ASTHMA
     Route: 065
  2. BOSMIN [Concomitant]
     Dosage: NR
     Route: 065
  3. INTAL [Concomitant]
     Dosage: NR
     Route: 065

REACTIONS (1)
  - CONVULSION [None]
